FAERS Safety Report 21060679 (Version 4)
Quarter: 2023Q1

REPORT INFORMATION
  Report Type: Report from Study
  Country: US (occurrence: US)
  Receive Date: 20220708
  Receipt Date: 20230131
  Transmission Date: 20230418
  Serious: Yes (Other)
  Sender: FDA-Public Use
  Company Number: US-ABBVIE-22K-163-4457866-00

PATIENT
  Age: 41 Year
  Sex: Male

DRUGS (5)
  1. HUMIRA [Suspect]
     Active Substance: ADALIMUMAB
     Indication: Psoriasis
     Route: 058
     Dates: start: 20171208, end: 202205
  2. ENBREL [Concomitant]
     Active Substance: ETANERCEPT
     Indication: Psoriasis
  3. TALTZ [Suspect]
     Active Substance: IXEKIZUMAB
     Indication: Psoriasis
     Route: 065
  4. MODERNA COVID-19 VACCINE [Concomitant]
     Active Substance: ELASOMERAN
     Indication: COVID-19 immunisation
     Dosage: 1ST DOSE
     Route: 030
     Dates: start: 202101, end: 202101
  5. MODERNA COVID-19 VACCINE [Concomitant]
     Active Substance: ELASOMERAN
     Indication: COVID-19 immunisation
     Dosage: 2ND DOSE
     Route: 030
     Dates: start: 202102, end: 202102

REACTIONS (20)
  - Hepatic cirrhosis [Unknown]
  - Hypoaesthesia [Unknown]
  - Arthritis [Unknown]
  - Skin wrinkling [Not Recovered/Not Resolved]
  - Dry skin [Not Recovered/Not Resolved]
  - Hepatic enzyme decreased [Unknown]
  - Eczema [Unknown]
  - Skin exfoliation [Not Recovered/Not Resolved]
  - Fall [Unknown]
  - Bone disorder [Not Recovered/Not Resolved]
  - Liver function test abnormal [Not Recovered/Not Resolved]
  - Erythema [Not Recovered/Not Resolved]
  - Therapeutic product effect decreased [Unknown]
  - Gait disturbance [Unknown]
  - Enzyme level increased [Unknown]
  - Pain [Unknown]
  - Blood pressure abnormal [Unknown]
  - Cardiac disorder [Unknown]
  - Spinal cord injury [Unknown]
  - Tremor [Unknown]

NARRATIVE: CASE EVENT DATE: 20220101
